FAERS Safety Report 13891120 (Version 1)
Quarter: 2017Q3

REPORT INFORMATION
  Report Type: Spontaneous
  Country: US (occurrence: US)
  Receive Date: 20170816
  Receipt Date: 20170816
  Transmission Date: 20171127
  Serious: No
  Sender: FDA-Public Use
  Company Number: None

PATIENT
  Age: 65 Year
  Sex: Male

DRUGS (2)
  1. XTANDI [Suspect]
     Active Substance: ENZALUTAMIDE
     Indication: PROSTATE CANCER
     Route: 065
     Dates: start: 20140201
  2. LUPRON [Concomitant]
     Active Substance: LEUPROLIDE ACETATE

REACTIONS (8)
  - Feeling abnormal [None]
  - Anxiety [None]
  - Asthenia [None]
  - Malaise [None]
  - Blood pressure increased [None]
  - Amnesia [None]
  - Anger [None]
  - Emotional disorder [None]

NARRATIVE: CASE EVENT DATE: 20140201
